FAERS Safety Report 7920833-4 (Version None)
Quarter: 2011Q4

REPORT INFORMATION
  Report Type: 
  Country: None (occurrence: None)
  Receive Date: 20111117
  Receipt Date: 20110729
  Transmission Date: 20120403
  Serious: No
  Sender: FDA-Public Use
  Company Number: US-GLAXOSMITHKLINE-A0939124A

PATIENT
  Age: 63 Year
  Sex: Male

DRUGS (16)
  1. UNKNOWN MEDICATION [Concomitant]
  2. TRIAMTERENE AND HYDROCHLOROTHIAZIDE [Concomitant]
  3. KEPPRA [Concomitant]
  4. VICTOZA [Concomitant]
  5. VOTRIENT [Suspect]
     Indication: RENAL CELL CARCINOMA
     Dosage: 800MG PER DAY
     Route: 048
     Dates: start: 20110722
  6. UNKNOWN DIURETIC [Concomitant]
  7. ASPIRIN [Concomitant]
  8. VITAMIN B-12 [Concomitant]
  9. LIPITOR [Concomitant]
  10. VICODIN [Concomitant]
  11. VITAMIN D [Concomitant]
  12. EMETROL [Concomitant]
  13. AMARYL [Concomitant]
  14. METFORMIN HCL [Concomitant]
  15. GABAPENTIN [Concomitant]
  16. VITAMIN B6 [Concomitant]

REACTIONS (11)
  - GAIT DISTURBANCE [None]
  - NAUSEA [None]
  - GLOSSODYNIA [None]
  - DIARRHOEA [None]
  - LETHARGY [None]
  - HYPERAESTHESIA [None]
  - BLOOD PRESSURE INCREASED [None]
  - VOMITING [None]
  - WEIGHT DECREASED [None]
  - FATIGUE [None]
  - DECREASED APPETITE [None]
